FAERS Safety Report 6289234-1 (Version None)
Quarter: 2009Q3

REPORT INFORMATION
  Report Type: 
  Country: None (occurrence: None)
  Receive Date: 20090729
  Receipt Date: 20090729
  Transmission Date: 20100115
  Serious: No
  Sender: FDA-Public Use
  Company Number: None

PATIENT
  Age: 79 Year
  Sex: Male
  Weight: 81.6475 kg

DRUGS (1)
  1. LEVAQUIN [Suspect]
     Indication: INFECTION
     Dosage: 750MG ONE A DAY PO
     Route: 048
     Dates: start: 20090421, end: 20090430

REACTIONS (2)
  - TENDON RUPTURE [None]
  - TENDONITIS [None]
